FAERS Safety Report 8790057 (Version 2)
Quarter: 2012Q4

REPORT INFORMATION
  Report Type: 
  Country: ES (occurrence: ES)
  Receive Date: 20120917
  Receipt Date: 20120917
  Transmission Date: 20130627
  Serious: Yes (Hospitalization)
  Sender: FDA-Public Use
  Company Number: ES-PFIZER INC-ES-WYE-G05398110

PATIENT
  Age: 1 Year
  Sex: Male

DRUGS (6)
  1. TAZOCEL [Suspect]
     Indication: RESPIRATORY TRACT INFECTION
     Dosage: Unknown
     Route: 042
     Dates: start: 20090616, end: 20090701
  2. OMEPRAZOLE [Suspect]
     Dosage: Unknown
     Route: 042
     Dates: start: 20090629, end: 20090701
  3. SULFAMETHOXAZOLE/TRIMETHOPRIM [Suspect]
     Indication: RESPIRATORY TRACT INFECTION
     Dosage: Unknown
     Route: 042
     Dates: start: 20090623, end: 20090702
  4. VANCOMYCIN [Suspect]
     Indication: RESPIRATORY TRACT INFECTION
     Dosage: Unknown
     Route: 042
     Dates: start: 20090616, end: 20090706
  5. PRIMPERAN [Suspect]
     Dosage: Unknown
     Route: 042
     Dates: start: 20090628, end: 20090701
  6. NOLOTIL [Concomitant]
     Dosage: UNK
     Route: 042
     Dates: start: 20090627, end: 20090630

REACTIONS (1)
  - Toxic skin eruption [Recovered/Resolved]
